FAERS Safety Report 8861447 (Version 1)
Quarter: 2012Q4

REPORT INFORMATION
  Report Type: Spontaneous
  Country: US (occurrence: None)
  Receive Date: 20121025
  Receipt Date: 20121025
  Transmission Date: 20130627
  Serious: Yes (Life-Threatening)
  Sender: FDA-Public Use
  Company Number: None

PATIENT
  Age: 57 Year
  Sex: Male

DRUGS (1)
  1. UNASYN [Suspect]
     Dosage: 3 grams IV every 6 hours
     Route: 042
     Dates: start: 20120526, end: 20120527

REACTIONS (2)
  - Angioedema [None]
  - Erythema [None]
